FAERS Safety Report 10771443 (Version 1)
Quarter: 2015Q1

REPORT INFORMATION
  Report Type: Spontaneous
  Country: US (occurrence: US)
  Receive Date: 20150206
  Receipt Date: 20150206
  Transmission Date: 20150721
  Serious: Yes (Hospitalization, Congenital Anomaly, Other)
  Sender: FDA-Public Use
  Company Number: US-GLAXOSMITHKLINE-A0687250A

PATIENT
  Age: 0 Day
  Sex: Male
  Weight: 1.6 kg

DRUGS (15)
  1. ZOLOFT [Concomitant]
     Active Substance: SERTRALINE HYDROCHLORIDE
     Route: 064
     Dates: start: 200509
  2. SUDAFED [Concomitant]
     Active Substance: PSEUDOEPHEDRINE HYDROCHLORIDE
     Route: 064
  3. TYLENOL [Concomitant]
     Active Substance: ACETAMINOPHEN
     Route: 064
  4. BENTYL [Concomitant]
     Active Substance: DICYCLOMINE HYDROCHLORIDE
     Route: 064
     Dates: start: 200511
  5. PAXIL CR [Suspect]
     Active Substance: PAROXETINE HYDROCHLORIDE
     Indication: ANXIETY
     Route: 064
     Dates: start: 20050204, end: 20050310
  6. PAXIL [Suspect]
     Active Substance: PAROXETINE HYDROCHLORIDE
     Indication: ANXIETY
     Route: 064
     Dates: start: 199912, end: 200508
  7. PAROXETINE HYDROCHLORIDE. [Suspect]
     Active Substance: PAROXETINE HYDROCHLORIDE
     Indication: ANXIETY
     Route: 064
     Dates: start: 20050328, end: 20050906
  8. SYNTHROID [Concomitant]
     Active Substance: LEVOTHYROXINE SODIUM
     Indication: HYPOTHYROIDISM
     Route: 064
     Dates: start: 1994
  9. PROZAC [Concomitant]
     Active Substance: FLUOXETINE HYDROCHLORIDE
     Route: 064
  10. ALDARA [Concomitant]
     Active Substance: IMIQUIMOD
     Route: 064
     Dates: start: 200506
  11. PRENATAL VITAMIN [Concomitant]
     Active Substance: VITAMINS
     Indication: PREGNANCY
     Route: 064
     Dates: start: 200508
  12. CELEXA [Concomitant]
     Active Substance: CITALOPRAM HYDROBROMIDE
     Indication: ANXIETY
     Route: 064
     Dates: start: 200511
  13. IMODIUM AD [Concomitant]
     Active Substance: LOPERAMIDE HYDROCHLORIDE
     Route: 064
     Dates: start: 200511
  14. CITALOPRAM [Concomitant]
     Active Substance: CITALOPRAM HYDROBROMIDE
     Route: 064
  15. ABREVA [Concomitant]
     Active Substance: DOCOSANOL
     Route: 064
     Dates: start: 200510

REACTIONS (19)
  - Exomphalos [Unknown]
  - Lung disorder [Unknown]
  - Bronchomalacia [Unknown]
  - Bacterial sepsis [Unknown]
  - Cardiac failure congestive [Unknown]
  - Left ventricular dysfunction [Unknown]
  - Respiratory failure [Unknown]
  - Ventricular septal defect [Unknown]
  - Pneumonia klebsiella [Unknown]
  - Persistent foetal circulation [Unknown]
  - Tracheomalacia [Unknown]
  - Right ventricular hypertrophy [Unknown]
  - Bronchopulmonary dysplasia [Unknown]
  - Laryngomalacia [Unknown]
  - Foetal exposure during pregnancy [Unknown]
  - Atrial septal defect [Unknown]
  - Gastroschisis [Unknown]
  - Patent ductus arteriosus [Unknown]
  - Apnoea [Unknown]

NARRATIVE: CASE EVENT DATE: 20060310
